FAERS Safety Report 13265583 (Version 4)
Quarter: 2017Q2

REPORT INFORMATION
  Report Type: Report from Study
  Country: US (occurrence: US)
  Receive Date: 20170223
  Receipt Date: 20170614
  Transmission Date: 20170830
  Serious: Yes (Hospitalization)
  Sender: FDA-Public Use
  Company Number: US-VIFOR (INTERNATIONAL) INC.-VIT-2017-01586

PATIENT
  Sex: Female
  Weight: 52.21 kg

DRUGS (18)
  1. VELTASSA [Suspect]
     Active Substance: PATIROMER
     Indication: HYPERKALAEMIA
     Route: 048
     Dates: start: 20170125
  2. VELTASSA [Suspect]
     Active Substance: PATIROMER
     Route: 048
     Dates: start: 2017
  3. PREDNISONE. [Concomitant]
     Active Substance: PREDNISONE
  4. NEPHRO-VITE [Concomitant]
  5. PHOSLO [Concomitant]
     Active Substance: CALCIUM ACETATE
  6. REMERON [Concomitant]
     Active Substance: MIRTAZAPINE
  7. TRAZODONE [Concomitant]
     Active Substance: TRAZODONE HYDROCHLORIDE
  8. SODIUM BICARBONATE. [Concomitant]
     Active Substance: SODIUM BICARBONATE
  9. BENTYL [Concomitant]
     Active Substance: DICYCLOMINE HYDROCHLORIDE
  10. CARVEDILOL. [Concomitant]
     Active Substance: CARVEDILOL
  11. LYRICA [Concomitant]
     Active Substance: PREGABALIN
  12. ZOFRAN [Concomitant]
     Active Substance: ONDANSETRON HYDROCHLORIDE
  13. XANAX [Concomitant]
     Active Substance: ALPRAZOLAM
  14. PROMETHAZINE [Concomitant]
     Active Substance: PROMETHAZINE\PROMETHAZINE HYDROCHLORIDE
  15. NORETHINDRONE. [Concomitant]
     Active Substance: NORETHINDRONE
  16. RENVELA [Suspect]
     Active Substance: SEVELAMER CARBONATE
     Indication: PRODUCT USED FOR UNKNOWN INDICATION
  17. AMLODIPINE [Concomitant]
     Active Substance: AMLODIPINE BESYLATE
  18. PROTONIX [Concomitant]
     Active Substance: PANTOPRAZOLE SODIUM

REACTIONS (6)
  - Blood potassium decreased [Recovered/Resolved]
  - Hypersensitivity [Unknown]
  - Chest pain [Recovered/Resolved]
  - Malaise [Unknown]
  - Blood potassium increased [Recovered/Resolved]
  - Asthma [Recovered/Resolved]

NARRATIVE: CASE EVENT DATE: 2017
